FAERS Safety Report 17747375 (Version 5)
Quarter: 2020Q3

REPORT INFORMATION
  Report Type: Report from Study
  Country: CO (occurrence: CO)
  Receive Date: 20200505
  Receipt Date: 20200923
  Transmission Date: 20201102
  Serious: Yes (Hospitalization, Other)
  Sender: FDA-Public Use
  Company Number: CO-ASTELLAS-2018US049803

PATIENT
  Age: 16 Year
  Sex: Male
  Weight: 35 kg

DRUGS (15)
  1. PREDNISOLONE. [Concomitant]
     Active Substance: PREDNISOLONE
     Route: 065
  2. TACROLIMUS. [Suspect]
     Active Substance: TACROLIMUS
     Dosage: 7 MG, ONCE DAILY (2 CAPSULES OF 1 MG AND 1 CAPSULE OF 5 MG)
     Route: 048
     Dates: start: 201810, end: 201810
  3. TACROLIMUS. [Suspect]
     Active Substance: TACROLIMUS
     Dosage: 7.5 MG (CAPSULE OF 5 MG, 2 OF 1 MG AND 1 OF 0.5 MG), ONCE DAILY
     Route: 048
     Dates: start: 201810, end: 20190621
  4. PREDNISOLONE. [Concomitant]
     Active Substance: PREDNISOLONE
     Route: 048
     Dates: start: 201911
  5. TACROLIMUS. [Suspect]
     Active Substance: TACROLIMUS
     Dosage: 8.5 MG (CAPSULE OF 5 MG, 3 OF 1 MG AND 1 OF 0.5 MG), ONCE DAILY
     Route: 048
     Dates: start: 20190622, end: 20190627
  6. TACROLIMUS. [Suspect]
     Active Substance: TACROLIMUS
     Dosage: 8 MG, ONCE DAILY (1 CAPSULE OF 5MG AND 3 CAPSULES OF 1MG)
     Route: 048
     Dates: start: 202003
  7. TACROLIMUS. [Suspect]
     Active Substance: TACROLIMUS
     Dosage: 9 MG, ONCE DAILY (1 CAPSULE OF 5MG AND 4 CAPSULES OF 1 MG)
     Route: 048
  8. MYCOPHENOLATE [Concomitant]
     Active Substance: MYCOPHENOLIC ACID
     Dosage: 900 MG, (540 MG IN MORNING AND 360 MG IN NIGHT)
     Route: 048
  9. PREDNISOLONE. [Concomitant]
     Active Substance: PREDNISOLONE
     Dosage: 7.5 MG, MONDAY, WEDNESDAY AND FRIDAY
     Route: 048
     Dates: end: 201911
  10. MYCOPHENOLATE [Concomitant]
     Active Substance: MYCOPHENOLIC ACID
     Indication: RENAL TRANSPLANT
     Dosage: 360 MG AT MORNING AND 360 MG AT AFTERNOON
     Route: 048
     Dates: start: 20180211
  11. TACROLIMUS. [Suspect]
     Active Substance: TACROLIMUS
     Dosage: 9 MG, (1 CAPSULE OF 5 MG AND 4 OF 1 MG) ONCE DAILY
     Route: 048
     Dates: start: 20190628, end: 202003
  12. MYCOPHENOLATE [Concomitant]
     Active Substance: MYCOPHENOLIC ACID
     Dosage: 360 MG AT MORNING AND 360 MG AT NIGHT
     Route: 048
  13. TACROLIMUS. [Suspect]
     Active Substance: TACROLIMUS
     Indication: RENAL TRANSPLANT
     Dosage: 8 MG, ONCE DAILY (3 CAPSULES OF 1 MG AND 1 CAPSULE OF 5 MG)
     Route: 048
     Dates: start: 20180210
  14. TACROLIMUS. [Suspect]
     Active Substance: TACROLIMUS
     Dosage: 10 MG (CAPSULES OF 5 MG), ONCE DAILY
     Route: 048
  15. PREDNISOLONE. [Concomitant]
     Active Substance: PREDNISOLONE
     Indication: RENAL TRANSPLANT
     Dosage: 7.5 MG, UNKN FREQ.(HALF DAY)
     Route: 048
     Dates: start: 20180211

REACTIONS (6)
  - Colitis [Recovered/Resolved]
  - Productive cough [Recovered/Resolved]
  - Kidney transplant rejection [Recovered/Resolved]
  - COVID-19 [Recovered/Resolved]
  - Immunosuppressant drug level decreased [Recovered/Resolved]
  - Weight decreased [Recovering/Resolving]

NARRATIVE: CASE EVENT DATE: 20181109
